FAERS Safety Report 4334238-9 (Version None)
Quarter: 2004Q2

REPORT INFORMATION
  Report Type: 
  Country: None (occurrence: None)
  Receive Date: 20040402
  Receipt Date: 20040330
  Transmission Date: 20050107
  Serious: Yes (Life-Threatening)
  Sender: FDA-Public Use
  Company Number: 2004PK00564

PATIENT
  Age: 52 Year
  Sex: Male
  Weight: 87 kg

DRUGS (6)
  1. ASCO TOP [Suspect]
     Indication: MIGRAINE
     Dosage: 2.5 MG PRN PO
     Route: 048
  2. ASCO TOP [Suspect]
     Indication: MIGRAINE
     Dosage: 2.5 MG PO
     Route: 048
     Dates: start: 20030925
  3. VIOXXDOLOR [Suspect]
     Indication: PAIN
     Dosage: 50 MG PRN PO
     Route: 048
     Dates: start: 20030921
  4. IMIGRAN NASAL [Suspect]
     Indication: MIGRAINE
     Dosage: 20 MG IN
     Route: 045
     Dates: start: 20030925
  5. PROPRANOLOL [Concomitant]
  6. GLUCOCORTICOIDS [Concomitant]

REACTIONS (9)
  - ARTERIAL SPASM [None]
  - ARTERIOSCLEROSIS [None]
  - GASTROINTESTINAL DISORDER [None]
  - GASTROINTESTINAL EROSION [None]
  - INTESTINAL HYPERMOTILITY [None]
  - MESENTERIC ARTERY STENOSIS [None]
  - MIGRAINE [None]
  - PERITONEAL ADHESIONS [None]
  - RETROPERITONEAL FIBROSIS [None]
